FAERS Safety Report 6218825-9 (Version None)
Quarter: 2009Q2

REPORT INFORMATION
  Report Type: 
  Country: None (occurrence: None)
  Receive Date: 20090608
  Receipt Date: 20090525
  Transmission Date: 20091009
  Serious: Yes (Other)
  Sender: FDA-Public Use
  Company Number: SE-ELI_LILLY_AND_COMPANY-SE200905005773

PATIENT
  Age: 45 Year
  Sex: Male

DRUGS (3)
  1. FONTEX [Suspect]
     Dosage: 40 MG, DAILY (1/D)
     Route: 048
     Dates: start: 19970101
  2. FONTEX [Suspect]
     Dosage: 40 MG, DAILY (1/D)
     Route: 048
     Dates: start: 19981101
  3. ALCOHOL [Concomitant]

REACTIONS (4)
  - AGGRESSION [None]
  - ALCOHOL INTERACTION [None]
  - PHYSICAL ASSAULT [None]
  - TREATMENT NONCOMPLIANCE [None]
